FAERS Safety Report 13438743 (Version 2)
Quarter: 2017Q2

REPORT INFORMATION
  Report Type: Spontaneous
  Country: US (occurrence: US)
  Receive Date: 20170412
  Receipt Date: 20170627
  Transmission Date: 20170830
  Serious: Yes (Other)
  Sender: FDA-Public Use
  Company Number: PHEH2017US010001

PATIENT
  Age: 38 Year
  Sex: Female
  Weight: 114 kg

DRUGS (1)
  1. COSENTYX [Suspect]
     Active Substance: SECUKINUMAB
     Indication: PSORIATIC ARTHROPATHY
     Dosage: 300 MG, QMO (Q 4 WEEKS)
     Route: 058
     Dates: start: 20170221, end: 20170329

REACTIONS (14)
  - Infectious disease carrier [Unknown]
  - Ulcer [Unknown]
  - Gastrooesophageal reflux disease [Unknown]
  - Sleep disorder [Unknown]
  - Urinary tract infection [Unknown]
  - Chest pain [Unknown]
  - Oesophageal infection [Unknown]
  - Influenza like illness [Unknown]
  - Candida infection [Unknown]
  - Fungal infection [Unknown]
  - Pain in extremity [Unknown]
  - Dyspnoea [Recovering/Resolving]
  - Dysphagia [Unknown]
  - Dry mouth [Unknown]

NARRATIVE: CASE EVENT DATE: 20170221
